FAERS Safety Report 24362174 (Version 1)
Quarter: 2024Q3

REPORT INFORMATION
  Report Type: Spontaneous
  Country: NL (occurrence: NL)
  Receive Date: 20240925
  Receipt Date: 20240925
  Transmission Date: 20241016
  Serious: Yes (Other)
  Sender: TEVA
  Company Number: None

PATIENT
  Age: 45 Year
  Sex: Male
  Weight: 73.4 kg

DRUGS (1)
  1. ESCITALOPRAM [Suspect]
     Active Substance: ESCITALOPRAM OXALATE
     Indication: Anxiety
     Dosage: 1DD1/ BRAND NAME NOT SPECIFIED
     Route: 065
     Dates: start: 20240830

REACTIONS (2)
  - Drug dependence [Recovered/Resolved]
  - Bruxism [Recovering/Resolving]
